FAERS Safety Report 5214150-3 (Version None)
Quarter: 2007Q1

REPORT INFORMATION
  Report Type: 
  Country: None (occurrence: None)
  Receive Date: 20070122
  Receipt Date: 20070111
  Transmission Date: 20070707
  Serious: Yes (Other)
  Sender: FDA-Public Use
  Company Number: FR-JNJFOC-20061102389

PATIENT
  Sex: Male

DRUGS (7)
  1. REMICADE [Suspect]
     Dosage: 4 INFUSIONS
     Route: 042
  2. REMICADE [Suspect]
     Indication: RHEUMATOID ARTHRITIS
     Dosage: 4 INFUSIONS
     Route: 042
  3. APROVEL [Concomitant]
     Route: 065
  4. ALLOPURINOL TAB [Concomitant]
     Route: 065
  5. CALCIT D3 [Concomitant]
     Route: 065
  6. PARACETAMOL [Concomitant]
     Route: 065
  7. NEXIUM [Concomitant]
     Route: 065

REACTIONS (16)
  - ARTHRALGIA [None]
  - ATROPHY [None]
  - BRAIN SCAN ABNORMAL [None]
  - COUGH [None]
  - DIFFUSE LARGE B-CELL LYMPHOMA [None]
  - GASTRIC DISORDER [None]
  - HAEMOPTYSIS [None]
  - HYPERCALCAEMIA [None]
  - LUNG NEOPLASM [None]
  - LYMPHADENOPATHY [None]
  - LYMPHADENOPATHY MEDIASTINAL [None]
  - NODULE [None]
  - PLEURAL DISORDER [None]
  - POSITRON EMISSION TOMOGRAM ABNORMAL [None]
  - RED BLOOD CELL SEDIMENTATION RATE INCREASED [None]
  - TREMOR [None]
